FAERS Safety Report 9844471 (Version 1)
Quarter: 2014Q1

REPORT INFORMATION
  Report Type: Report from Study
  Country: CA (occurrence: CA)
  Receive Date: 20140127
  Receipt Date: 20140127
  Transmission Date: 20141002
  Serious: Yes (Life-Threatening)
  Sender: FDA-Public Use
  Company Number: CA-ROCHE-1335926

PATIENT
  Age: 53 Year
  Sex: Female
  Weight: 72 kg

DRUGS (4)
  1. LEDIPASVIR [Suspect]
     Indication: HEPATITIS C
     Route: 048
     Dates: start: 20111202, end: 20120517
  2. VEDROPREVIR [Suspect]
     Indication: HEPATITIS C
     Route: 048
     Dates: start: 20111202, end: 20120517
  3. RIBAVIRIN [Suspect]
     Indication: HEPATITIS C
     Route: 048
     Dates: start: 20111202, end: 20120517
  4. TEGOBUVIR [Suspect]
     Indication: HEPATITIS C
     Route: 048
     Dates: start: 20111202, end: 20120517

REACTIONS (1)
  - Lung adenocarcinoma [Not Recovered/Not Resolved]
